FAERS Safety Report 13261553 (Version 1)
Quarter: 2017Q1

REPORT INFORMATION
  Report Type: Spontaneous
  Country: IN (occurrence: IN)
  Receive Date: 20170222
  Receipt Date: 20170222
  Transmission Date: 20170428
  Serious: Yes (Other)
  Sender: FDA-Public Use
  Company Number: IN-BAXALTA-2017BLT000905

PATIENT
  Age: 27 Year
  Sex: Male

DRUGS (1)
  1. ADVATE [Suspect]
     Active Substance: ANTIHEMOPHILIC FACTOR, HUMAN RECOMBINANT
     Indication: FACTOR VIII DEFICIENCY
     Dosage: 500 IU, UNK
     Route: 042
     Dates: start: 201612

REACTIONS (2)
  - Haemorrhage [Unknown]
  - Drug effect decreased [Unknown]
